FAERS Safety Report 6538924-1 (Version None)
Quarter: 2010Q1

REPORT INFORMATION
  Report Type: 
  Country: None (occurrence: None)
  Receive Date: 20100115
  Receipt Date: 20100112
  Transmission Date: 20100710
  Serious: Yes (Other)
  Sender: FDA-Public Use
  Company Number: US-ELI_LILLY_AND_COMPANY-US201001001913

PATIENT
  Sex: Male

DRUGS (7)
  1. GEMCITABINE HCL [Suspect]
     Indication: TRANSITIONAL CELL CARCINOMA
     Dosage: 165.6 MG, UNK
     Dates: start: 20091028, end: 20091216
  2. PACLITAXEL [Suspect]
     Indication: TRANSITIONAL CELL CARCINOMA
     Dosage: 538 MG, UNK
     Dates: start: 20091028, end: 20091209
  3. CARBOPLATIN [Suspect]
     Indication: TRANSITIONAL CELL CARCINOMA
     Dosage: 375 MG, UNK
     Dates: start: 20091028, end: 20091209
  4. SIMVASTATIN [Concomitant]
     Indication: HYPERLIPIDAEMIA
     Dosage: 40 MG, UNK
     Route: 048
     Dates: start: 20080901
  5. ATENOLOL [Concomitant]
     Indication: HYPERTENSION
     Dosage: 25 MG, UNK
     Route: 048
     Dates: start: 20090901
  6. IRON [Concomitant]
     Indication: MEDICAL DIET
     Dosage: 1 D/F, UNK
     Route: 048
     Dates: start: 20090101
  7. COMPAZINE [Concomitant]
     Indication: NAUSEA
     Dosage: 1 D/F, UNK
     Route: 048
     Dates: start: 20091028

REACTIONS (1)
  - DEEP VEIN THROMBOSIS [None]
